FAERS Safety Report 5506538-8 (Version None)
Quarter: 2007Q4

REPORT INFORMATION
  Report Type: 
  Country: None (occurrence: None)
  Receive Date: 20071105
  Receipt Date: 20071030
  Transmission Date: 20080405
  Serious: Yes (Disabling)
  Sender: FDA-Public Use
  Company Number: B0490346A

PATIENT
  Age: 70 Year
  Sex: Female
  Weight: 37.1 kg

DRUGS (11)
  1. ARIXTRA [Suspect]
     Indication: THROMBOSIS PROPHYLAXIS
     Dosage: 2.5MG PER DAY
     Route: 058
     Dates: start: 20070921, end: 20070928
  2. UNKNOWN DRUG [Concomitant]
     Dosage: 2G PER DAY
     Route: 042
     Dates: start: 20070920, end: 20071003
  3. ASPIRIN [Concomitant]
     Indication: CEREBRAL INFARCTION
     Route: 048
     Dates: end: 20070915
  4. FAMOTIDINE [Concomitant]
     Dosage: 40MG PER DAY
     Route: 048
  5. ZYLORIC [Concomitant]
     Dosage: 40MG PER DAY
     Route: 048
  6. DIOVAN [Concomitant]
     Indication: HYPERTENSION
     Dosage: 40MG PER DAY
     Route: 048
  7. SELBEX [Concomitant]
     Indication: GASTRIC ULCER
     Dosage: 150MG PER DAY
     Route: 048
  8. MAGLAX [Concomitant]
     Dosage: 1320MG PER DAY
     Route: 048
  9. DEPAS [Concomitant]
     Dosage: .5MG PER DAY
     Route: 048
  10. ALOSENN [Concomitant]
     Dosage: 1G PER DAY
     Route: 048
  11. SILECE [Concomitant]
     Dosage: 2MG PER DAY
     Route: 048

REACTIONS (5)
  - ANAEMIA [None]
  - CEREBRAL INFARCTION [None]
  - HEMIPARESIS [None]
  - POST PROCEDURAL HAEMORRHAGE [None]
  - WOUND COMPLICATION [None]
